FAERS Safety Report 6990797-9 (Version None)
Quarter: 2010Q3

REPORT INFORMATION
  Report Type: 
  Country: None (occurrence: None)
  Receive Date: 20100916
  Receipt Date: 20090810
  Transmission Date: 20110219
  Serious: Yes (Other)
  Sender: FDA-Public Use
  Company Number: HQWYE581028JUL05

PATIENT
  Sex: Female
  Weight: 69.46 kg

DRUGS (3)
  1. PREMARIN [Suspect]
     Indication: HORMONE REPLACEMENT THERAPY
     Dosage: 0.625MG, FREQUENCY UNKNOWN
     Route: 048
     Dates: start: 20000101, end: 20031201
  2. PREMARIN [Suspect]
     Indication: MENOPAUSAL SYMPTOMS
  3. MEDROXYPROGESTERONE [Suspect]

REACTIONS (1)
  - BREAST CANCER [None]
